FAERS Safety Report 12706680 (Version 1)
Quarter: 2016Q3

REPORT INFORMATION
  Report Type: Spontaneous
  Country: IT (occurrence: IT)
  Receive Date: 20160901
  Receipt Date: 20160901
  Transmission Date: 20161109
  Serious: Yes (Other)
  Sender: FDA-Public Use
  Company Number: IT-009507513-1608USA015807

PATIENT
  Age: 81 Year
  Sex: Female
  Weight: 70 kg

DRUGS (9)
  1. ROSUVASTATIN CALCIUM. [Suspect]
     Active Substance: ROSUVASTATIN CALCIUM
     Dosage: REDUCING THE DOSE
  2. TIKLID [Concomitant]
     Active Substance: TICLOPIDINE HYDROCHLORIDE
     Indication: MYOCARDIAL INFARCTION
  3. ZETIA [Concomitant]
     Active Substance: EZETIMIBE
     Indication: MYOCARDIAL INFARCTION
  4. PRAVASTATIN. [Suspect]
     Active Substance: PRAVASTATIN
     Dosage: REDUCING THE DOSE
  5. DIETARY SUPPLEMENT (UNSPECIFIED) [Concomitant]
     Active Substance: DIETARY SUPPLEMENT
  6. OLPREZIDE [Concomitant]
     Active Substance: HYDROCHLOROTHIAZIDE\OLMESARTAN MEDOXOMIL
     Indication: MYOCARDIAL INFARCTION
  7. SIMVASTATIN. [Suspect]
     Active Substance: SIMVASTATIN
     Dosage: REDUCING THE DOSE
  8. LOPRESSOR [Concomitant]
     Active Substance: METOPROLOL TARTRATE
     Indication: MYOCARDIAL INFARCTION
  9. ATORVASTATIN [Suspect]
     Active Substance: ATORVASTATIN
     Dosage: REDUCING THE DOSE

REACTIONS (2)
  - Myopathy [Recovered/Resolved]
  - Pain [Recovered/Resolved]
